FAERS Safety Report 8128050-2 (Version None)
Quarter: 2012Q1

REPORT INFORMATION
  Report Type: 
  Country: None (occurrence: None)
  Receive Date: 20120210
  Receipt Date: 20120123
  Transmission Date: 20120608
  Serious: No
  Sender: FDA-Public Use
  Company Number: US-JNJFOC-20120103393

PATIENT
  Sex: Male
  Weight: 99.79 kg

DRUGS (15)
  1. INVEGA [Suspect]
     Indication: PRODUCT USED FOR UNKNOWN INDICATION
     Route: 065
  2. QUINAPRIL [Concomitant]
     Route: 065
  3. TRICOR [Concomitant]
     Route: 065
  4. PROZAC [Concomitant]
     Route: 065
  5. MULTI-VITAMINS [Concomitant]
     Route: 065
  6. TEGRETOL [Concomitant]
     Route: 065
  7. ACCURETIC [Concomitant]
     Route: 065
  8. INCIVEK [Suspect]
     Indication: HEPATITIS C
     Route: 048
     Dates: start: 20111130
  9. CELEBREX [Concomitant]
     Route: 065
  10. RIBAVIRIN [Concomitant]
     Indication: HEPATITIS C
     Route: 048
     Dates: start: 20111130
  11. CORTICOSTEROIDS [Concomitant]
     Route: 065
  12. ASPIRIN [Concomitant]
     Route: 065
  13. PEGASYS [Suspect]
     Indication: HEPATITIS C
     Route: 058
     Dates: start: 20111130
  14. TORADOL [Concomitant]
     Route: 065
  15. GABAPENTIN [Concomitant]
     Route: 065

REACTIONS (5)
  - DYSPNOEA [None]
  - WEIGHT INCREASED [None]
  - FATIGUE [None]
  - BRONCHITIS [None]
  - ANORECTAL DISORDER [None]
